FAERS Safety Report 16080283 (Version 3)
Quarter: 2019Q4

REPORT INFORMATION
  Report Type: Spontaneous
  Country: US (occurrence: US)
  Receive Date: 20190315
  Receipt Date: 20191204
  Transmission Date: 20200122
  Serious: No
  Sender: FDA-Public Use
  Company Number: US-PTC THERAPEUTICS, INC.-US-2018PTC001273

PATIENT

DRUGS (2)
  1. EMFLAZA [Suspect]
     Active Substance: DEFLAZACORT
     Dosage: 24 MG, QD
     Route: 048
     Dates: start: 20171103
  2. EMFLAZA [Suspect]
     Active Substance: DEFLAZACORT
     Indication: MUSCULAR DYSTROPHY
     Dosage: 24 MG, QD
     Route: 048
     Dates: start: 20170915

REACTIONS (2)
  - Product use complaint [Not Recovered/Not Resolved]
  - Haematochezia [Unknown]
